FAERS Safety Report 9790149 (Version 3)
Quarter: 2014Q2

REPORT INFORMATION
  Report Type: Spontaneous
  Country: US (occurrence: US)
  Receive Date: 20131231
  Receipt Date: 20140520
  Transmission Date: 20141212
  Serious: Yes (Hospitalization)
  Sender: FDA-Public Use
  Company Number: US-BAYER-2013-158442

PATIENT
  Age: 30 Year
  Sex: Female
  Weight: 90.7 kg

DRUGS (4)
  1. MIRENA [Suspect]
     Indication: CONTRACEPTION
     Dosage: 20 MCG/24HR, CONT
     Route: 015
     Dates: start: 20080125, end: 20130410
  2. ZOFRAN [Concomitant]
     Dosage: 4 MG, UNK
     Route: 048
  3. AMOXICILLIN [Concomitant]
     Indication: PHARYNGITIS STREPTOCOCCAL
     Dosage: 500 MG, UNK
     Route: 048
  4. PROZAC [Concomitant]

REACTIONS (6)
  - Uterine perforation [None]
  - Injury [None]
  - Medical device discomfort [None]
  - Medical device pain [None]
  - Device misuse [None]
  - Off label use [None]
